FAERS Safety Report 8918864 (Version 1)
Quarter: 2012Q4

REPORT INFORMATION
  Report Type: Spontaneous
  Country: US (occurrence: None)
  Receive Date: 20121115
  Receipt Date: 20121115
  Transmission Date: 20130627
  Serious: No
  Sender: FDA-Public Use
  Company Number: None

PATIENT
  Age: 59 Year
  Sex: Male
  Weight: 96.9 kg

DRUGS (1)
  1. ENOXAPARIN [Suspect]
     Route: 058
     Dates: start: 20121001, end: 20121011

REACTIONS (2)
  - Haemorrhage [None]
  - Haematoma [None]
